FAERS Safety Report 19855674 (Version 1)
Quarter: 2021Q3

REPORT INFORMATION
  Report Type: Spontaneous
  Country: US (occurrence: US)
  Receive Date: 20210920
  Receipt Date: 20210920
  Transmission Date: 20211014
  Serious: No
  Sender: FDA-Public Use
  Company Number: None

PATIENT
  Age: 26 Year
  Sex: Male
  Weight: 67.5 kg

DRUGS (2)
  1. MULTIVITAMINS [Concomitant]
     Active Substance: VITAMINS
  2. FINASTERIDE 5MG [Suspect]
     Active Substance: FINASTERIDE
     Indication: ANDROGENETIC ALOPECIA
     Dosage: ?          QUANTITY:1 TABLET(S);?
     Dates: start: 20130918, end: 20201112

REACTIONS (5)
  - Anxiety [None]
  - Penile size reduced [None]
  - Loss of libido [None]
  - Erectile dysfunction [None]
  - Insomnia [None]

NARRATIVE: CASE EVENT DATE: 20201103
